FAERS Safety Report 9086965 (Version 2)
Quarter: 2013Q1

REPORT INFORMATION
  Report Type: Spontaneous
  Country: US (occurrence: US)
  Receive Date: 20130131
  Receipt Date: 20130301
  Transmission Date: 20140127
  Serious: Yes (Other)
  Sender: FDA-Public Use
  Company Number: US-PFIZER INC-2013034219

PATIENT
  Age: 77 Year
  Sex: Female
  Weight: 81.63 kg

DRUGS (14)
  1. NEURONTIN [Suspect]
     Indication: RESTLESS LEGS SYNDROME
     Dosage: 300 MG, 2X/DAY
     Route: 048
     Dates: start: 2012
  2. METHOCARBAMOL [Concomitant]
     Indication: MUSCLE RELAXANT THERAPY
     Dosage: 750 MG, UNK
  3. PERCOCET [Concomitant]
     Dosage: [ACETAMINOPHEN 325MG]/[OXYCODONE 10MG]
  4. LIPITOR [Concomitant]
     Dosage: 10 MG, UNK
  5. CARVEDILOL [Concomitant]
     Indication: CARDIAC DISORDER
     Dosage: 25 MG, 2X/DAY
  6. ESTRADIOL [Concomitant]
     Dosage: 0.5 MG, 1X/DAY
  7. ZEMPLAR [Concomitant]
     Dosage: 1 UG, WEEKLY
  8. SYNTHROID [Concomitant]
     Dosage: 0.05 MG, 1X/DAY
  9. VESICARE [Concomitant]
     Dosage: 5 MG, 1X/DAY
  10. NEXIUM [Concomitant]
     Dosage: 40 MG, 1X/DAY
  11. AMLODIPINE [Concomitant]
     Dosage: 2.5 MG, 1X/DAY
  12. LEXAPRO [Concomitant]
     Dosage: 10 MG, 1X/DAY
  13. ELMIRON [Concomitant]
     Dosage: 100 MG, 1X/DAY
  14. ASPIRIN [Concomitant]
     Dosage: 81 MG, UNK

REACTIONS (9)
  - Back disorder [Unknown]
  - Balance disorder [Unknown]
  - Fall [Unknown]
  - Impaired driving ability [Unknown]
  - Somnolence [Not Recovered/Not Resolved]
  - Asthenia [Not Recovered/Not Resolved]
  - Dizziness [Not Recovered/Not Resolved]
  - Off label use [Not Recovered/Not Resolved]
  - Therapeutic response unexpected [Unknown]
